FAERS Safety Report 12772553 (Version 2)
Quarter: 2016Q4

REPORT INFORMATION
  Report Type: Report from Study
  Country: US (occurrence: US)
  Receive Date: 20160922
  Receipt Date: 20161126
  Transmission Date: 20170207
  Serious: No
  Sender: FDA-Public Use
  Company Number: PHHY2016US130118

PATIENT
  Age: 59 Year
  Sex: Female

DRUGS (1)
  1. GILENYA [Suspect]
     Active Substance: FINGOLIMOD HYDROCHLORIDE
     Indication: MULTIPLE SCLEROSIS
     Dosage: QD
     Route: 048

REACTIONS (4)
  - Asthenia [Recovered/Resolved]
  - Dizziness [Not Recovered/Not Resolved]
  - Dehydration [Unknown]
  - Muscular weakness [Recovered/Resolved]

NARRATIVE: CASE EVENT DATE: 20160703
